FAERS Safety Report 25502159 (Version 5)
Quarter: 2025Q3

REPORT INFORMATION
  Report Type: Spontaneous
  Country: US (occurrence: US)
  Receive Date: 20250702
  Receipt Date: 20250731
  Transmission Date: 20251020
  Serious: No
  Sender: JOHNSON AND JOHNSON
  Company Number: US-JNJFOC-20250637340

PATIENT
  Age: 49 Year
  Sex: Female

DRUGS (1)
  1. GUSELKUMAB [Suspect]
     Active Substance: GUSELKUMAB
     Indication: Product used for unknown indication
     Route: 065

REACTIONS (3)
  - Device deployment issue [Unknown]
  - Product dose omission issue [Unknown]
  - Incorrect disposal of product [Unknown]

NARRATIVE: CASE EVENT DATE: 20250621
